FAERS Safety Report 17684351 (Version 1)
Quarter: 2020Q2

REPORT INFORMATION
  Report Type: Report from Study
  Country: GF (occurrence: GF)
  Receive Date: 20200420
  Receipt Date: 20200420
  Transmission Date: 20200714
  Serious: Yes (Hospitalization, Other)
  Sender: FDA-Public Use
  Company Number: GF-GLAXOSMITHKLINE-GF2020GSK065908

PATIENT

DRUGS (3)
  1. DIDANOSINE. [Suspect]
     Active Substance: DIDANOSINE
     Indication: HIV INFECTION
     Dosage: UNK
  2. LAMIVUDINE. [Suspect]
     Active Substance: LAMIVUDINE
     Indication: HIV INFECTION
     Dosage: UNK
  3. EFAVIRENZ. [Suspect]
     Active Substance: EFAVIRENZ
     Indication: HIV INFECTION
     Dosage: UNK

REACTIONS (8)
  - Histoplasmosis [Unknown]
  - Weight decreased [Unknown]
  - Hepatomegaly [Unknown]
  - Acute kidney injury [Unknown]
  - Immune reconstitution inflammatory syndrome [Unknown]
  - Pyrexia [Unknown]
  - Anaemia [Unknown]
  - Diarrhoea [Unknown]
